FAERS Safety Report 14406434 (Version 1)
Quarter: 2018Q1

REPORT INFORMATION
  Report Type: Spontaneous
  Country: US (occurrence: US)
  Receive Date: 20180118
  Receipt Date: 20180118
  Transmission Date: 20180509
  Serious: No
  Sender: FDA-Public Use
  Company Number: US-009507513-1712USA012608

PATIENT
  Age: 21 Year
  Sex: Female
  Weight: 92.52 kg

DRUGS (2)
  1. PREDNISONE. [Suspect]
     Active Substance: PREDNISONE
     Dosage: UNK
     Route: 048
     Dates: start: 2017
  2. NUVARING [Suspect]
     Active Substance: ETHINYL ESTRADIOL\ETONOGESTREL
     Indication: CONTRACEPTION
     Dosage: 3 WEEKS IN WITH 1 WEEK BREAK
     Route: 067
     Dates: start: 20171128

REACTIONS (3)
  - Vaginal haemorrhage [Unknown]
  - Medical device site discomfort [Unknown]
  - Abnormal withdrawal bleeding [Unknown]

NARRATIVE: CASE EVENT DATE: 2017
